FAERS Safety Report 5031225-2 (Version None)
Quarter: 2006Q2

REPORT INFORMATION
  Report Type: 
  Country: None (occurrence: None)
  Receive Date: 20060621
  Receipt Date: 20060417
  Transmission Date: 20061013
  Serious: Yes (Other)
  Sender: FDA-Public Use
  Company Number: US-GLAXOSMITHKLINE-A0601986A

PATIENT
  Age: 52 Year
  Sex: Female

DRUGS (11)
  1. AVANDARYL [Suspect]
     Dosage: 4MG PER DAY
     Route: 048
     Dates: start: 20060417
  2. LEVOXYL [Concomitant]
  3. HYDRALAZINE HCL [Concomitant]
  4. TARKA [Concomitant]
  5. PINDOLOL [Concomitant]
  6. CLONIDINE [Concomitant]
  7. MORPHINE [Concomitant]
  8. MIRALAX [Concomitant]
  9. LORTAB [Concomitant]
  10. COUMADIN [Concomitant]
  11. LASIX [Concomitant]

REACTIONS (1)
  - HYPOGLYCAEMIA [None]
